FAERS Safety Report 8485557-6 (Version None)
Quarter: 2012Q3

REPORT INFORMATION
  Report Type: 
  Country: None (occurrence: None)
  Receive Date: 20120703
  Receipt Date: 20120625
  Transmission Date: 20120928
  Serious: Yes (Hospitalization)
  Sender: FDA-Public Use
  Company Number: JP-SHIRE-ALL1-2012-03126

PATIENT
  Age: 74 Year
  Sex: Male

DRUGS (1)
  1. FOSRENOL [Suspect]
     Indication: HYPERPHOSPHATAEMIA
     Dosage: 750 MG/DAY, UNKNOWN
     Route: 048

REACTIONS (1)
  - LARGE INTESTINE PERFORATION [None]
